FAERS Safety Report 4707500-5 (Version None)
Quarter: 2005Q3

REPORT INFORMATION
  Report Type: 
  Country: None (occurrence: None)
  Receive Date: 20050706
  Receipt Date: 20050627
  Transmission Date: 20060218
  Serious: Yes (Other)
  Sender: FDA-Public Use
  Company Number: PHBS2005GR09274

PATIENT
  Age: 68 Year
  Sex: Male

DRUGS (1)
  1. IMATINIB [Suspect]
     Indication: CHRONIC MYELOID LEUKAEMIA
     Dosage: 400 MG, QD

REACTIONS (3)
  - BLOOD IMMUNOGLOBULIN G INCREASED [None]
  - LIGHT CHAIN ANALYSIS INCREASED [None]
  - MULTIPLE MYELOMA [None]
